FAERS Safety Report 6256649-7 (Version None)
Quarter: 2009Q3

REPORT INFORMATION
  Report Type: 
  Country: None (occurrence: None)
  Receive Date: 20090706
  Receipt Date: 20090625
  Transmission Date: 20100115
  Serious: Yes (Death)
  Sender: FDA-Public Use
  Company Number: CA-BAXTER-2009BH010772

PATIENT
  Age: 65 Year
  Sex: Male

DRUGS (1)
  1. ADVATE [Suspect]
     Indication: HAEMOPHILIA
     Route: 065

REACTIONS (1)
  - HAEMORRHAGE [None]
